FAERS Safety Report 10134711 (Version 1)
Quarter: 2014Q2

REPORT INFORMATION
  Report Type: Spontaneous
  Country: US (occurrence: US)
  Receive Date: 20140428
  Receipt Date: 20140428
  Transmission Date: 20141212
  Serious: Yes (Death, Life-Threatening, Hospitalization, Other)
  Sender: FDA-Public Use
  Company Number: US-ACTAVIS-2014-08248

PATIENT
  Age: 80 Year
  Sex: Male

DRUGS (16)
  1. ALLOPURINOL (WATSON LABORATORIES) [Suspect]
     Indication: GOUT
     Dosage: 300 MG, DAILY
     Route: 048
  2. TRIAMTERENE/HYDROCHLOROTHIAZIDE (WATSON LABORATORIES) [Suspect]
     Indication: HYPERTENSION
     Dosage: 37.5/25 MG,QOD
     Route: 048
  3. FLUTICASONE [Concomitant]
     Indication: PRODUCT USED FOR UNKNOWN INDICATION
     Dosage: 110 MCG DAILY
     Route: 055
  4. FLUTICASONE PROPIONATE [Concomitant]
     Indication: PRODUCT USED FOR UNKNOWN INDICATION
     Dosage: ONE SPRAY IN BOTH NOSTRILS DAILY
     Route: 055
  5. MONTELUKAST [Concomitant]
     Indication: PRODUCT USED FOR UNKNOWN INDICATION
     Dosage: 10 MG, DAILY
     Route: 048
  6. IRBESARTAN [Concomitant]
     Indication: PRODUCT USED FOR UNKNOWN INDICATION
     Dosage: 300 MG, DAILY
     Route: 048
  7. AMLODIPINE [Concomitant]
     Indication: PRODUCT USED FOR UNKNOWN INDICATION
     Dosage: 5 MG, DAILY
     Route: 048
  8. GLYBURIDE [Concomitant]
     Indication: PRODUCT USED FOR UNKNOWN INDICATION
     Dosage: 2.5 MG, BID
     Route: 048
  9. ALBUTEROL                          /00139501/ [Concomitant]
     Indication: PRODUCT USED FOR UNKNOWN INDICATION
     Dosage: 90 MCG 2 PUFFS Q6H PRN
     Route: 055
  10. TERAZOSIN [Concomitant]
     Indication: PRODUCT USED FOR UNKNOWN INDICATION
     Dosage: 2 MG, QHS
     Route: 048
  11. SIMVASTATIN [Concomitant]
     Indication: PRODUCT USED FOR UNKNOWN INDICATION
     Dosage: 40 MG, DAILY
     Route: 048
  12. AZELASTINE [Concomitant]
     Indication: PRODUCT USED FOR UNKNOWN INDICATION
     Dosage: 137 MCG 1 SPRAY ,PRN
     Route: 055
  13. MECLIZINE                          /00072801/ [Concomitant]
     Indication: PRODUCT USED FOR UNKNOWN INDICATION
     Dosage: 25 MG, PRN, DAILY
     Route: 048
  14. FEXOFENADINE [Concomitant]
     Indication: PRODUCT USED FOR UNKNOWN INDICATION
     Dosage: 150 MG, QPM
     Route: 048
  15. CYCLOBENZAPRINE [Concomitant]
     Indication: PRODUCT USED FOR UNKNOWN INDICATION
     Dosage: 10 MG, QHS,PRN , DAILY
     Route: 048
  16. HYDROCODONE/ACETAMINOPHEN          /01554201/ [Concomitant]
     Indication: PRODUCT USED FOR UNKNOWN INDICATION
     Dosage: 5/500 MG 2 TABS DAILY, PRN
     Route: 048

REACTIONS (6)
  - Cerebrovascular accident [Fatal]
  - Respiratory failure [Fatal]
  - Cardiogenic shock [Fatal]
  - Drug reaction with eosinophilia and systemic symptoms [Recovering/Resolving]
  - Prescribed overdose [Unknown]
  - Dysgeusia [Unknown]
